FAERS Safety Report 4277638-8 (Version None)
Quarter: 2004Q1

REPORT INFORMATION
  Report Type: 
  Country: None (occurrence: None)
  Receive Date: 20040121
  Receipt Date: 20031117
  Transmission Date: 20041129
  Serious: Yes (Hospitalization, Other)
  Sender: FDA-Public Use
  Company Number: KII-2003-0006913

PATIENT
  Age: 48 Year
  Sex: Female

DRUGS (1)
  1. MORPHINE SULFATE [Suspect]
     Dosage: SEE IMAGE
     Route: 048

REACTIONS (7)
  - AGITATION [None]
  - DRUG ABUSER [None]
  - INTENTIONAL SELF-INJURY [None]
  - MIOSIS [None]
  - OVERDOSE [None]
  - PULMONARY OEDEMA [None]
  - SCREAMING [None]
